FAERS Safety Report 6405673-X (Version None)
Quarter: 2009Q4

REPORT INFORMATION
  Report Type: 
  Country: None (occurrence: None)
  Receive Date: 20091019
  Receipt Date: 20091013
  Transmission Date: 20100525
  Serious: Yes (Other)
  Sender: FDA-Public Use
  Company Number: B0598404A

PATIENT
  Sex: Female

DRUGS (1)
  1. FLONASE [Suspect]
     Route: 055
     Dates: start: 20090920, end: 20090920

REACTIONS (3)
  - ASPHYXIA [None]
  - BRONCHOSPASM [None]
  - COUGH [None]
